FAERS Safety Report 5943621-7 (Version None)
Quarter: 2008Q4

REPORT INFORMATION
  Report Type: 
  Country: None (occurrence: None)
  Receive Date: 20081106
  Receipt Date: 20060217
  Transmission Date: 20090506
  Serious: Yes (Hospitalization)
  Sender: FDA-Public Use
  Company Number: PHBS2005FR18299

PATIENT
  Age: 58 Year
  Sex: Male

DRUGS (10)
  1. ANAFRANIL [Suspect]
     Dosage: 2 TABLETS/D
     Route: 048
     Dates: end: 20051101
  2. BACLOFEN [Suspect]
     Dosage: 1 DF, TID
     Route: 048
     Dates: end: 20051101
  3. TIAPRIDAL [Suspect]
     Dosage: 30 DRP, TID
     Route: 048
     Dates: end: 20051101
  4. THERALENE [Suspect]
     Dosage: 10 DROPS/D
     Route: 048
     Dates: end: 20051101
  5. CLOPIXOL [Suspect]
     Dosage: 50 DRP, TID
     Route: 048
     Dates: end: 20051101
  6. LEPTICUR [Suspect]
     Dosage: 1 DF/D
     Route: 065
     Dates: end: 20051101
  7. RIVOTRIL [Concomitant]
     Dosage: 20 DRP, TID
     Route: 048
     Dates: end: 20051101
  8. AMPHOTERICIN B [Concomitant]
     Dosage: 2 TABLETS/D
     Route: 048
  9. MOPRAL [Concomitant]
     Dosage: 1 TABLET/D
     Route: 048
  10. FRAXIPARINE [Concomitant]
     Dosage: 1 INJECTION/D
     Route: 042

REACTIONS (3)
  - FAECAL VOMITING [None]
  - GASTROINTESTINAL HYPOMOTILITY [None]
  - INTESTINAL OBSTRUCTION [None]
